FAERS Safety Report 6852014-X (Version None)
Quarter: 2010Q3

REPORT INFORMATION
  Report Type: 
  Country: None (occurrence: None)
  Receive Date: 20100717
  Receipt Date: 20071105
  Transmission Date: 20110219
  Serious: No
  Sender: FDA-Public Use
  Company Number: US-PFIZER INC-2007093941

PATIENT
  Sex: Female
  Weight: 117.9 kg

DRUGS (7)
  1. CHANTIX [Suspect]
     Indication: SMOKING CESSATION THERAPY
     Route: 048
     Dates: start: 20070901, end: 20070910
  2. ANTIHYPERTENSIVES [Concomitant]
     Indication: HYPERTENSION
  3. LIPITOR [Concomitant]
  4. BENICAR [Concomitant]
  5. TOPROL-XL [Concomitant]
  6. CLONIDINE [Concomitant]
  7. TRAZODONE HYDROCHLORIDE [Concomitant]

REACTIONS (1)
  - HEADACHE [None]
